FAERS Safety Report 18704951 (Version 2)
Quarter: 2021Q1

REPORT INFORMATION
  Report Type: Spontaneous
  Country: US (occurrence: US)
  Receive Date: 20210105
  Receipt Date: 20210114
  Transmission Date: 20210419
  Serious: Yes (Hospitalization)
  Sender: FDA-Public Use
  Company Number: US-ASTRAZENECA-2020SF75464

PATIENT
  Age: 80 Year
  Sex: Male
  Weight: 92.1 kg

DRUGS (1)
  1. BYDUREON BCISE [Suspect]
     Active Substance: EXENATIDE
     Route: 058

REACTIONS (5)
  - Pain [Recovering/Resolving]
  - Device leakage [Unknown]
  - Incorrect dose administered [Unknown]
  - COVID-19 [Recovering/Resolving]
  - Injection site nodule [Unknown]
